FAERS Safety Report 9365857 (Version 2)
Quarter: 2013Q2

REPORT INFORMATION
  Report Type: Report from Study
  Country: IE (occurrence: IE)
  Receive Date: 20130625
  Receipt Date: 20130628
  Transmission Date: 20140414
  Serious: Yes (Death, Hospitalization)
  Sender: FDA-Public Use
  Company Number: PHHO2013GB008126

PATIENT
  Sex: 0

DRUGS (3)
  1. IMATINIB [Suspect]
     Indication: ACUTE LYMPHOCYTIC LEUKAEMIA
     Dosage: 500 MG, UNK
     Route: 048
     Dates: start: 20110930
  2. VINCRISTINE [Concomitant]
     Dosage: 2 MG, QW
     Route: 042
     Dates: start: 20110924, end: 20120106
  3. METHOTREXATE [Concomitant]
     Dosage: 5 GM/M2 SINGLE DOSE
     Route: 042
     Dates: start: 20120105

REACTIONS (3)
  - Sepsis [Fatal]
  - Peroneal nerve palsy [Not Recovered/Not Resolved]
  - Drug clearance increased [Recovered/Resolved]
